FAERS Safety Report 6296774-8 (Version None)
Quarter: 2009Q3

REPORT INFORMATION
  Report Type: 
  Country: None (occurrence: None)
  Receive Date: 20090724
  Receipt Date: 20090522
  Transmission Date: 20100115
  Serious: Yes (Hospitalization)
  Sender: FDA-Public Use
  Company Number: 2009BI013100

PATIENT
  Age: 52 Year
  Sex: Female

DRUGS (10)
  1. TYSABRI [Suspect]
     Indication: MULTIPLE SCLEROSIS
     Dosage: 300 MG;QM;IV
     Route: 042
     Dates: start: 20080507
  2. ZYRTEC [Concomitant]
  3. TYLENOL ES [Concomitant]
  4. KLONOPIN [Concomitant]
  5. ADDERALL 10 [Concomitant]
  6. EFFEXOR [Concomitant]
  7. METFORMIN HCL [Concomitant]
  8. TOPROL-XL [Concomitant]
  9. AMITRIPTYLINE [Concomitant]
  10. AVONEX [Concomitant]

REACTIONS (5)
  - BACK PAIN [None]
  - FATIGUE [None]
  - MULTIPLE SCLEROSIS [None]
  - PERONEAL NERVE PALSY [None]
  - PNEUMONIA [None]
